FAERS Safety Report 5753803-5 (Version None)
Quarter: 2008Q2

REPORT INFORMATION
  Report Type: 
  Country: None (occurrence: None)
  Receive Date: 20080530
  Receipt Date: 20080228
  Transmission Date: 20081010
  Serious: No
  Sender: FDA-Public Use
  Company Number: A0712470A

PATIENT
  Sex: Female

DRUGS (1)
  1. ARRANON [Suspect]

REACTIONS (2)
  - ERYTHEMA [None]
  - WOUND [None]
